FAERS Safety Report 14152913 (Version 5)
Quarter: 2020Q2

REPORT INFORMATION
  Report Type: Spontaneous
  Country: ZA (occurrence: ZA)
  Receive Date: 20171102
  Receipt Date: 20200601
  Transmission Date: 20200713
  Serious: Yes (Other)
  Sender: FDA-Public Use
  Company Number: ZA-PFIZER INC-2017467944

PATIENT
  Age: 21 Year
  Sex: Male
  Weight: 92 kg

DRUGS (5)
  1. ENBREL [Concomitant]
     Active Substance: ETANERCEPT
     Dosage: 50 MG, WEEKLY
     Route: 058
     Dates: start: 201407
  2. METHOTREXATE SODIUM. [Suspect]
     Active Substance: METHOTREXATE SODIUM
     Dosage: 30 UG, WEEKLY
     Route: 058
     Dates: start: 201106, end: 201406
  3. PLASMAQUINE [Suspect]
     Active Substance: CHLOROQUINE SULFATE
     Dosage: 200 UG, DAILY
     Dates: start: 201106
  4. ARAVA [Suspect]
     Active Substance: LEFLUNOMIDE
     Dosage: 20 UG, DAILY
     Dates: start: 201405, end: 201407
  5. SALAZOPYRIN [Suspect]
     Active Substance: SULFASALAZINE
     Dosage: 1 G, TWICE A DAY
     Dates: start: 201305

REACTIONS (5)
  - Drug ineffective [Unknown]
  - Hypersensitivity [Unknown]
  - Cachexia [Unknown]
  - Gastrooesophageal reflux disease [Unknown]
  - Hepatic steatosis [Unknown]

NARRATIVE: CASE EVENT DATE: 2013
